FAERS Safety Report 16338770 (Version 1)
Quarter: 2019Q2

REPORT INFORMATION
  Report Type: Spontaneous
  Country: US (occurrence: US)
  Receive Date: 20190521
  Receipt Date: 20190521
  Transmission Date: 20190711
  Serious: Yes (Other)
  Sender: FDA-Public Use
  Company Number: US-AKORN PHARMACEUTICALS-2019AKN00955

PATIENT
  Age: 33 Year
  Sex: Female
  Weight: 49.89 kg

DRUGS (2)
  1. MYORISAN [Suspect]
     Active Substance: ISOTRETINOIN
     Indication: ACNE
     Dosage: 40 MG, 2X/DAY ON WED. AND SUN.
     Route: 048
     Dates: start: 20190322, end: 20190424
  2. MYORISAN [Suspect]
     Active Substance: ISOTRETINOIN
     Dosage: 40 MG, 1X/DAY ON MON., TUES., THURS., FRI., AND SAT.
     Route: 048
     Dates: start: 20190322, end: 20190424

REACTIONS (3)
  - Off label use [Recovered/Resolved]
  - Accident [Recovered/Resolved]
  - Lower limb fracture [Unknown]

NARRATIVE: CASE EVENT DATE: 2019
